FAERS Safety Report 14410916 (Version 1)
Quarter: 2018Q1

REPORT INFORMATION
  Report Type: Spontaneous
  Country: US (occurrence: US)
  Receive Date: 20180119
  Receipt Date: 20180119
  Transmission Date: 20180509
  Serious: Yes (Other)
  Sender: FDA-Public Use
  Company Number: PHEH2018US001738

PATIENT
  Age: 5 Year
  Sex: Male
  Weight: 37 kg

DRUGS (1)
  1. ILARIS [Suspect]
     Active Substance: CANAKINUMAB
     Indication: CRYOPYRIN ASSOCIATED PERIODIC SYNDROME
     Dosage: 30 MG, EVERY 8 WEEKS
     Route: 058
     Dates: start: 20160701, end: 20180101

REACTIONS (4)
  - Pyrexia [Unknown]
  - Delusion [Unknown]
  - Social fear [Unknown]
  - Hallucination [Unknown]

NARRATIVE: CASE EVENT DATE: 20180107
